FAERS Safety Report 16612857 (Version 2)
Quarter: 2019Q3

REPORT INFORMATION
  Report Type: Spontaneous
  Country: GB (occurrence: GB)
  Receive Date: 20190722
  Receipt Date: 20190819
  Transmission Date: 20191004
  Serious: Yes (Other)
  Sender: FDA-Public Use
  Company Number: PHHY2019GB164720

PATIENT
  Age: 71 Year
  Sex: Female

DRUGS (5)
  1. AMITRIPTYLINE [Concomitant]
     Active Substance: AMITRIPTYLINE
     Indication: PRODUCT USED FOR UNKNOWN INDICATION
     Dosage: UNK
     Route: 065
  2. ZOLEDRONIC ACID [Suspect]
     Active Substance: ZOLEDRONIC ACID
     Indication: METASTASES TO BONE
     Dosage: UNK, 2 CYCLES
     Route: 041
     Dates: start: 201607
  3. RANITIDINE. [Concomitant]
     Active Substance: RANITIDINE
     Indication: PRODUCT USED FOR UNKNOWN INDICATION
     Dosage: UNK
     Route: 065
  4. SOLIFENACIN [Concomitant]
     Active Substance: SOLIFENACIN
     Indication: PRODUCT USED FOR UNKNOWN INDICATION
     Dosage: UNK
     Route: 065
  5. PACLITAXEL. [Concomitant]
     Active Substance: PACLITAXEL
     Indication: METASTASES TO BONE
     Dosage: 80 MG/M2, 3 CYCLICAL, WEEKLY
     Route: 042
     Dates: start: 201606

REACTIONS (5)
  - Electrolyte imbalance [Recovered/Resolved]
  - Hypophosphataemia [Recovered/Resolved]
  - Hypophosphataemic osteomalacia [Unknown]
  - Concomitant disease aggravated [Recovered/Resolved]
  - Hypocalcaemia [Recovered/Resolved]

NARRATIVE: CASE EVENT DATE: 2016
